FAERS Safety Report 7092759-2 (Version None)
Quarter: 2010Q4

REPORT INFORMATION
  Report Type: 
  Country: None (occurrence: None)
  Receive Date: 20101110
  Receipt Date: 20100322
  Transmission Date: 20110411
  Serious: Yes (Other)
  Sender: FDA-Public Use
  Company Number: US-PFIZER INC-2010037294

PATIENT
  Sex: Female
  Weight: 72.562 kg

DRUGS (8)
  1. MINIPRESS [Suspect]
     Indication: MOOD ALTERED
     Dosage: 2 MG, 2X/DAY
     Dates: start: 20100301
  2. MINIPRESS [Suspect]
     Dosage: 3 MG, 2X/DAY
     Dates: start: 20100301
  3. MINIPRESS [Suspect]
     Dosage: 5 MG, 2X/DAY
     Dates: start: 20100301
  4. ABILIFY [Concomitant]
  5. PHENOBARBITAL [Concomitant]
  6. MIRAPEX [Concomitant]
     Dosage: UNK
  7. ATIVAN [Concomitant]
     Dosage: UNK, DAILY
  8. ZOFRAN [Concomitant]
     Dosage: UNK

REACTIONS (1)
  - OEDEMA PERIPHERAL [None]
